FAERS Safety Report 5293269-5 (Version None)
Quarter: 2007Q2

REPORT INFORMATION
  Report Type: 
  Country: None (occurrence: None)
  Receive Date: 20070411
  Receipt Date: 20070402
  Transmission Date: 20071010
  Serious: Yes (Hospitalization)
  Sender: FDA-Public Use
  Company Number: US-BRACCO-BDI-009335

PATIENT
  Sex: Female

DRUGS (4)
  1. CHOLETEC [Suspect]
     Indication: ABDOMINAL PAIN
     Route: 042
  2. CHOLETEC [Suspect]
     Route: 042
  3. KINEVAC [Suspect]
     Indication: ABDOMINAL PAIN
     Dosage: ADMINISTERED OVER 4 MINUTES
     Route: 050
  4. KINEVAC [Suspect]
     Dosage: ADMINISTERED OVER 4 MINUTES
     Route: 050

REACTIONS (7)
  - ABDOMINAL PAIN [None]
  - CHILLS [None]
  - HEADACHE [None]
  - INCOHERENT [None]
  - NAUSEA [None]
  - VOMITING [None]
  - WHITE BLOOD CELL COUNT INCREASED [None]
